FAERS Safety Report 6128081-8 (Version None)
Quarter: 2009Q1

REPORT INFORMATION
  Report Type: 
  Country: None (occurrence: None)
  Receive Date: 20090323
  Receipt Date: 20090311
  Transmission Date: 20090719
  Serious: Yes (Hospitalization)
  Sender: FDA-Public Use
  Company Number: FR-PFIZER INC-2009184334

PATIENT

DRUGS (9)
  1. HYDROXYZINE HCL [Suspect]
     Indication: MENTAL DISORDER
     Dosage: 300 MG, UNK
     Route: 048
  2. MODITEN [Suspect]
     Dosage: 300 MG, UNK
     Route: 048
  3. SCOPODERM [Suspect]
     Dosage: 01 DF, UNK
     Route: 062
     Dates: end: 20090226
  4. LEPTICUR [Suspect]
     Dosage: 20 MG, UNK
     Route: 048
  5. LOXAPAC [Suspect]
     Dosage: 300 MG, UNK
     Route: 048
  6. HEPTAMINOL [Concomitant]
     Dosage: 03 GTT, UNK
  7. CYPROTERONE ACETATE [Concomitant]
     Dosage: 06 DF, UNK
  8. MACROGOL [Concomitant]
     Dosage: 04 DF, UNK
  9. DEPAKENE [Concomitant]
     Dosage: 1750 MG, UNK

REACTIONS (5)
  - ANAEMIA [None]
  - CONSTIPATION [None]
  - DRUG INTERACTION [None]
  - INTESTINAL OBSTRUCTION [None]
  - THROMBOCYTOPENIA [None]
